FAERS Safety Report 24863697 (Version 1)
Quarter: 2025Q1

REPORT INFORMATION
  Report Type: Spontaneous
  Country: US (occurrence: US)
  Receive Date: 20250120
  Receipt Date: 20250120
  Transmission Date: 20250408
  Serious: No
  Sender: Phathom Pharmaceuticals
  Company Number: US-PHATHOM PHARMACEUTICALS INC.-2024PHT01383

PATIENT
  Age: 57 Year
  Sex: Male
  Weight: 94.1 kg

DRUGS (1)
  1. VOQUEZNA [Suspect]
     Active Substance: VONOPRAZAN FUMARATE
     Indication: Gastrooesophageal reflux disease
     Dosage: 20 MG, 1X/DAY
     Route: 048
     Dates: start: 20240708, end: 20241121

REACTIONS (3)
  - Arthralgia [Unknown]
  - Weight loss poor [Unknown]
  - Renal impairment [Unknown]

NARRATIVE: CASE EVENT DATE: 20240101
